FAERS Safety Report 6314471-7 (Version None)
Quarter: 2009Q3

REPORT INFORMATION
  Report Type: 
  Country: None (occurrence: None)
  Receive Date: 20090819
  Receipt Date: 20090814
  Transmission Date: 20100115
  Serious: Yes (Hospitalization)
  Sender: FDA-Public Use
  Company Number: US-BRISTOL-MYERS SQUIBB COMPANY-14742027

PATIENT
  Age: 62 Year

DRUGS (11)
  1. CARBOPLATIN [Suspect]
     Indication: NON-SMALL CELL LUNG CANCER
     Route: 042
     Dates: start: 20090730
  2. ABRAXANE [Suspect]
     Indication: NON-SMALL CELL LUNG CANCER
     Route: 042
     Dates: start: 20090730
  3. METOCLOPRAMIDE [Concomitant]
  4. NEURONTIN [Concomitant]
  5. AMBIEN [Concomitant]
  6. ESCITALOPRAM [Concomitant]
  7. RANITIDINE [Concomitant]
  8. MULTI-VITAMIN [Concomitant]
  9. VITAMIN B COMPLEX CAP [Concomitant]
  10. DEXAMETHASONE [Concomitant]
  11. PERCOCET [Concomitant]

REACTIONS (2)
  - CONVULSION [None]
  - FEBRILE NEUTROPENIA [None]
